FAERS Safety Report 4532186-2 (Version None)
Quarter: 2004Q4

REPORT INFORMATION
  Report Type: 
  Country: None (occurrence: None)
  Receive Date: 20041217
  Receipt Date: 20041206
  Transmission Date: 20050328
  Serious: Yes (Hospitalization, Other)
  Sender: FDA-Public Use
  Company Number: 2004108938

PATIENT
  Age: 52 Year
  Sex: Male

DRUGS (9)
  1. LINEZOLID SOLUTION, STERILE (LINEZOLID) [Suspect]
     Indication: LUNG INFECTION
     Dosage: 1200 MG (600 MG, BID), INTRAVEOUS
     Route: 042
     Dates: start: 20040930, end: 20041014
  2. PIPERACILLIN [Suspect]
     Indication: LUNG INFECTION
     Dosage: 8 G (4 GRAM, BID), INTRAVENOUS
     Route: 042
     Dates: start: 20040930, end: 20041014
  3. TAZOBACTAM [Suspect]
     Indication: LUNG INFECTION
     Dosage: 1000 MG (500 MG, BID), INTRAVENOUS
     Route: 042
     Dates: start: 20040920, end: 20041014
  4. SPASFON (PHLOROGLUCINOL, TRIMETHYLPHLOROGLUCINOL) [Concomitant]
  5. PHYTONADIONE [Concomitant]
  6. OMEPRAZOLE [Concomitant]
  7. URSODEOXYCHOLIC ACID (URODEOXYCHOLIC ACID) [Concomitant]
  8. ACETAMINOPHEN [Concomitant]
  9. VITAMIN B1 AND B6 (PYRIDOXINE, THIAMINE) [Concomitant]

REACTIONS (5)
  - ANURIA [None]
  - BLOOD CREATININE INCREASED [None]
  - BLOOD UREA INCREASED [None]
  - CREATININE RENAL CLEARANCE DECREASED [None]
  - DIALYSIS [None]
